FAERS Safety Report 24551551 (Version 1)
Quarter: 2024Q4

REPORT INFORMATION
  Report Type: Spontaneous
  Country: DE (occurrence: DE)
  Receive Date: 20241026
  Receipt Date: 20241026
  Transmission Date: 20250114
  Serious: Yes (Other)
  Sender: AMGEN
  Company Number: DE-AMGEN-DEUSP2024210550

PATIENT
  Sex: Female

DRUGS (1)
  1. INEBILIZUMAB [Suspect]
     Active Substance: INEBILIZUMAB
     Indication: Exposure during pregnancy
     Dosage: UNK
     Route: 050

REACTIONS (3)
  - Abortion spontaneous [Recovered/Resolved]
  - Maternal exposure during pregnancy [Recovered/Resolved]
  - Exposure via partner [Recovered/Resolved]

NARRATIVE: CASE EVENT DATE: 20230301
